FAERS Safety Report 26108570 (Version 1)
Quarter: 2025Q4

REPORT INFORMATION
  Report Type: Report from Study
  Country: MX (occurrence: MX)
  Receive Date: 20251201
  Receipt Date: 20251201
  Transmission Date: 20260118
  Serious: Yes (Hospitalization, Other)
  Sender: BIOVITRUM
  Company Number: MX-AstraZeneca-CH-00899501A

PATIENT
  Age: 5 Month
  Sex: Male
  Weight: 6.315 kg

DRUGS (7)
  1. PALIVIZUMAB [Suspect]
     Active Substance: PALIVIZUMAB
     Indication: Antiviral prophylaxis
     Dosage: 0.57 MILLILITER, QMONTH
     Route: 030
     Dates: start: 20250214
  2. PALIVIZUMAB [Suspect]
     Active Substance: PALIVIZUMAB
     Dosage: 0.86 MILLILITER, QMONTH
     Route: 030
     Dates: start: 20250423, end: 20250423
  3. PALIVIZUMAB [Suspect]
     Active Substance: PALIVIZUMAB
     Dosage: 0.83 MILLILITER, QMONTH
     Route: 030
     Dates: start: 20250528, end: 20250528
  4. PALIVIZUMAB [Suspect]
     Active Substance: PALIVIZUMAB
     Dosage: 0.94 MILLILITER, QMONTH
     Route: 030
     Dates: start: 20250625, end: 20250625
  5. PALIVIZUMAB [Suspect]
     Active Substance: PALIVIZUMAB
     Dosage: 1.04 MILLILITER, QMONTH
     Route: 030
     Dates: start: 20250730, end: 20250730
  6. PALIVIZUMAB [Suspect]
     Active Substance: PALIVIZUMAB
     Dosage: 1.06 MILLILITER, QMONTH
     Route: 030
     Dates: start: 20250828, end: 20250828
  7. PALIVIZUMAB [Suspect]
     Active Substance: PALIVIZUMAB
     Dosage: 1.1 MILLILITER, QMONTH
     Route: 030
     Dates: start: 20250930, end: 20250930

REACTIONS (5)
  - Injection site pain [Recovered/Resolved]
  - Pyrexia [Recovered/Resolved]
  - Cough [Not Recovered/Not Resolved]
  - Pulmonary congestion [Not Recovered/Not Resolved]
  - Bronchiolitis [Recovered/Resolved]

NARRATIVE: CASE EVENT DATE: 20250625
